FAERS Safety Report 17376126 (Version 1)
Quarter: 2020Q1

REPORT INFORMATION
  Report Type: Spontaneous
  Country: US (occurrence: US)
  Receive Date: 20200206
  Receipt Date: 20200206
  Transmission Date: 20200409
  Serious: Yes (Other)
  Sender: FDA-Public Use
  Company Number: US-HETERO-HET2020US00106

PATIENT
  Age: 55 Year
  Sex: Male
  Weight: 85 kg

DRUGS (9)
  1. ATAZANAVIR. [Suspect]
     Active Substance: ATAZANAVIR
     Indication: HIV INFECTION
     Dosage: 300 MG, QD
     Route: 048
  2. FENTANYL. [Suspect]
     Active Substance: FENTANYL
     Indication: PRODUCT USED FOR UNKNOWN INDICATION
     Dosage: 30 UG EVERY 10 MINUTES
     Route: 065
  3. RITONAVIR. [Suspect]
     Active Substance: RITONAVIR
     Indication: HIV INFECTION
     Dosage: 100 MG, QD
     Route: 048
  4. LIDOCAINE. [Suspect]
     Active Substance: LIDOCAINE
     Dosage: 120 MG
     Route: 040
  5. LIDOCAINE. [Suspect]
     Active Substance: LIDOCAINE
     Indication: PROCEDURAL PAIN
     Dosage: 1MG/KG/HOUR
     Route: 042
  6. LIDOCAINE. [Suspect]
     Active Substance: LIDOCAINE
     Dosage: INFUSION 1MG/KG/H
     Route: 042
  7. LIDOCAINE. [Suspect]
     Active Substance: LIDOCAINE
     Dosage: INFUSION 2MG/KG/H FOR 2 HOURS
     Route: 065
  8. ABACAVIR + LAMIVUDIN [Suspect]
     Active Substance: ABACAVIR\LAMIVUDINE
     Indication: HIV INFECTION
     Dosage: UNK
     Route: 048
  9. FENTANYL. [Suspect]
     Active Substance: FENTANYL
     Dosage: 1140 UG WITHIN THE PREVIOUS 24 HOURS
     Route: 065

REACTIONS (6)
  - Sinus tachycardia [Unknown]
  - Hypertension [Unknown]
  - Drug interaction [Unknown]
  - Dizziness [Unknown]
  - Loss of consciousness [Recovering/Resolving]
  - Toxicity to various agents [Unknown]
